FAERS Safety Report 5521695-5 (Version None)
Quarter: 2007Q4

REPORT INFORMATION
  Report Type: 
  Country: None (occurrence: None)
  Receive Date: 20071120
  Receipt Date: 20071108
  Transmission Date: 20080405
  Serious: Yes (Other)
  Sender: FDA-Public Use
  Company Number: US-BAYER-200713572BWH

PATIENT
  Weight: 60 kg

DRUGS (3)
  1. PRECOSE [Suspect]
     Indication: DRUG USE FOR UNKNOWN INDICATION
     Dosage: TOTAL DAILY DOSE: 150 MG
     Route: 048
  2. PRECOSE [Suspect]
     Dosage: TOTAL DAILY DOSE: 150 MG  UNIT DOSE: 50 MG
     Route: 048
  3. GLYBURIDE [Concomitant]

REACTIONS (1)
  - BEZOAR [None]
